FAERS Safety Report 7780622-0 (Version None)
Quarter: 2011Q3

REPORT INFORMATION
  Report Type: 
  Country: None (occurrence: None)
  Receive Date: 20110927
  Receipt Date: 20101110
  Transmission Date: 20111222
  Serious: Yes (Hospitalization, Other)
  Sender: FDA-Public Use
  Company Number: US-BRISTOL-MYERS SQUIBB COMPANY-15377385

PATIENT
  Age: 50 Year
  Sex: Male
  Weight: 72 kg

DRUGS (8)
  1. CLONAZEPAM [Concomitant]
  2. DEPAKOTE [Concomitant]
     Dosage: 1DF-500(UNITS NOT SPECIFIED)
  3. ESTAZOLAM [Concomitant]
  4. AVAPRO [Suspect]
  5. AVALIDE [Suspect]
     Dates: start: 20070101
  6. AMOXICILLIN [Concomitant]
  7. SERTRALINE HYDROCHLORIDE [Concomitant]
     Dosage: 1DF-100(UNITS NOT SPECIFIED)
  8. DIOVAN [Concomitant]

REACTIONS (3)
  - PAIN [None]
  - BONE PAIN [None]
  - CEREBROVASCULAR ACCIDENT [None]
